FAERS Safety Report 19780431 (Version 1)
Quarter: 2021Q3

REPORT INFORMATION
  Report Type: Spontaneous
  Country: AU (occurrence: AU)
  Receive Date: 20210902
  Receipt Date: 20210902
  Transmission Date: 20211014
  Serious: Yes (Other)
  Sender: FDA-Public Use
  Company Number: AU-AMERICAN REGENT INC-2021002274

PATIENT
  Age: 60 Year
  Sex: Female

DRUGS (1)
  1. FERINJECT [Suspect]
     Active Substance: FERRIC CARBOXYMALTOSE
     Indication: PRODUCT USED FOR UNKNOWN INDICATION
     Dosage: UNK
     Dates: start: 20210209, end: 20210209

REACTIONS (8)
  - Blood phosphorus decreased [Unknown]
  - Rib fracture [Not Recovered/Not Resolved]
  - Nausea [Recovering/Resolving]
  - Skin laceration [Unknown]
  - Loss of consciousness [Recovered/Resolved]
  - Contusion [Unknown]
  - Fatigue [Unknown]
  - Asthenia [Recovering/Resolving]

NARRATIVE: CASE EVENT DATE: 2021
